FAERS Safety Report 13565786 (Version 7)
Quarter: 2017Q4

REPORT INFORMATION
  Report Type: Spontaneous
  Country: JP (occurrence: JP)
  Receive Date: 20170520
  Receipt Date: 20171213
  Transmission Date: 20180320
  Serious: Yes (Congenital Anomaly)
  Sender: FDA-Public Use
  Company Number: JP-AMGEN-JPNSP2017077394

PATIENT
  Age: 0 Day
  Sex: Male
  Weight: 3 kg

DRUGS (3)
  1. GRAN [Suspect]
     Active Substance: FILGRASTIM
     Dosage: 150 MUG, 3 TIMES/WK
     Route: 064
     Dates: start: 20150610
  2. GRAN [Suspect]
     Active Substance: FILGRASTIM
     Indication: PRODUCT USED FOR UNKNOWN INDICATION
     Dosage: 100 MUG, 2 TIMES/WK
     Route: 064
     Dates: end: 20150610
  3. G-LASTA [Suspect]
     Active Substance: PEGFILGRASTIM
     Indication: PRODUCT USED FOR UNKNOWN INDICATION
     Dosage: UNK
     Route: 064

REACTIONS (1)
  - Infantile genetic agranulocytosis [Unknown]

NARRATIVE: CASE EVENT DATE: 20160116
